FAERS Safety Report 12392244 (Version 2)
Quarter: 2016Q3

REPORT INFORMATION
  Report Type: Spontaneous
  Country: US (occurrence: US)
  Receive Date: 20160523
  Receipt Date: 20160706
  Transmission Date: 20161109
  Serious: No
  Sender: FDA-Public Use
  Company Number: US-009507513-1605USA002400

PATIENT
  Age: 29 Year
  Sex: Female
  Weight: 60.32 kg

DRUGS (2)
  1. NEXPLANON [Suspect]
     Active Substance: ETONOGESTREL
     Dosage: 1 ROD,EVERY 3 YEARS
     Route: 059
     Dates: end: 20160503
  2. NEXPLANON [Suspect]
     Active Substance: ETONOGESTREL
     Dosage: 1 ROD, EVERY 3 YEARS
     Route: 059
     Dates: start: 20160503

REACTIONS (3)
  - No adverse event [Unknown]
  - Device breakage [Recovered/Resolved]
  - Difficulty removing drug implant [Recovered/Resolved]

NARRATIVE: CASE EVENT DATE: 20160503
